FAERS Safety Report 5389635-X (Version None)
Quarter: 2007Q3

REPORT INFORMATION
  Report Type: 
  Country: None (occurrence: None)
  Receive Date: 20070717
  Receipt Date: 20070703
  Transmission Date: 20080115
  Serious: Yes (Hospitalization)
  Sender: FDA-Public Use
  Company Number: US-AMGEN-KDL220714

PATIENT
  Sex: Male
  Weight: 108 kg

DRUGS (8)
  1. ENBREL [Suspect]
     Indication: PSORIATIC ARTHROPATHY
     Route: 058
     Dates: start: 20070401, end: 20070401
  2. SULFASALAZINE [Concomitant]
     Dates: start: 20030101
  3. METHOTREXATE [Concomitant]
     Dates: start: 20040101
  4. ZOCOR [Concomitant]
  5. PREDNISONE [Concomitant]
  6. XANAX [Concomitant]
  7. CYMBALTA [Concomitant]
  8. FOLATE SODIUM [Concomitant]

REACTIONS (7)
  - CHEST PAIN [None]
  - DIARRHOEA [None]
  - HYPERTENSION [None]
  - MALAISE [None]
  - RASH [None]
  - TACHYCARDIA [None]
  - VOMITING [None]
